FAERS Safety Report 8160642-7 (Version None)
Quarter: 2012Q1

REPORT INFORMATION
  Report Type: 
  Country: None (occurrence: None)
  Receive Date: 20120223
  Receipt Date: 20120221
  Transmission Date: 20120608
  Serious: Yes (Hospitalization)
  Sender: FDA-Public Use
  Company Number: DE-ROCHE-1042224

PATIENT
  Age: 53 Year
  Sex: Female

DRUGS (8)
  1. PREDNISONE TAB [Suspect]
     Indication: NON-HODGKIN'S LYMPHOMA
  2. MABTHERA [Suspect]
     Indication: NON-HODGKIN'S LYMPHOMA
     Route: 042
  3. VINCRISTINE [Suspect]
     Indication: NON-HODGKIN'S LYMPHOMA
     Route: 042
  4. CYTARABINE [Suspect]
     Indication: NON-HODGKIN'S LYMPHOMA
  5. CYCLOPHOSPHAMIDE [Suspect]
     Indication: NON-HODGKIN'S LYMPHOMA
     Route: 042
  6. DOXORUBICIN HCL [Suspect]
     Indication: NON-HODGKIN'S LYMPHOMA
     Route: 042
  7. CISPLATIN [Suspect]
     Indication: NON-HODGKIN'S LYMPHOMA
  8. DEXAMETHASONE [Suspect]
     Indication: NON-HODGKIN'S LYMPHOMA

REACTIONS (3)
  - VOMITING [None]
  - NAUSEA [None]
  - DEHYDRATION [None]
